FAERS Safety Report 11208905 (Version 2)
Quarter: 2015Q3

REPORT INFORMATION
  Report Type: Spontaneous
  Country: US (occurrence: US)
  Receive Date: 20150622
  Receipt Date: 20150730
  Transmission Date: 20151125
  Serious: No
  Sender: FDA-Public Use
  Company Number: US-CELGENEUS-USA-2015064070

PATIENT
  Age: 72 Year
  Sex: Female

DRUGS (3)
  1. BACTROBAN [Concomitant]
     Active Substance: MUPIROCIN\MUPIROCIN CALCIUM
     Indication: EXCORIATION
     Route: 065
     Dates: start: 20150317
  2. OTEZLA [Suspect]
     Active Substance: APREMILAST
     Indication: PRODUCT USED FOR UNKNOWN INDICATION
     Dosage: STARTER PACKS
     Route: 048
     Dates: start: 20150512
  3. ATIVAN [Concomitant]
     Active Substance: LORAZEPAM
     Indication: ANXIETY
     Dosage: .5 MILLIGRAM
     Route: 065

REACTIONS (2)
  - Eczema [Not Recovered/Not Resolved]
  - Depression [Recovering/Resolving]

NARRATIVE: CASE EVENT DATE: 20150512
